FAERS Safety Report 21451075 (Version 1)
Quarter: 2022Q4

REPORT INFORMATION
  Report Type: Spontaneous
  Country: US (occurrence: None)
  Receive Date: 20221013
  Receipt Date: 20221013
  Transmission Date: 20230112
  Serious: No
  Sender: FDA-Public Use
  Company Number: 2022A334812

PATIENT
  Age: 70 Year
  Sex: Female
  Weight: 53.5 kg

DRUGS (6)
  1. TAGRISSO [Suspect]
     Active Substance: OSIMERTINIB
     Indication: Lung adenocarcinoma stage IV
     Route: 048
     Dates: start: 20220727
  2. FISH OIL [Concomitant]
     Active Substance: FISH OIL
  3. VITAMIN D [Concomitant]
     Active Substance: VITAMIN D NOS
  4. CALCIUM CITRATE [Concomitant]
     Active Substance: CALCIUM CITRATE
  5. AVOCADO-SOY UNSAPONILFIABLES [Concomitant]
     Indication: Arthropathy
  6. DOXYLAMINE [Concomitant]
     Active Substance: DOXYLAMINE

REACTIONS (3)
  - Arthralgia [Recovering/Resolving]
  - Blood sodium decreased [Not Recovered/Not Resolved]
  - Blood chloride decreased [Not Recovered/Not Resolved]

NARRATIVE: CASE EVENT DATE: 20220909
